FAERS Safety Report 23853353 (Version 1)
Quarter: 2024Q2

REPORT INFORMATION
  Report Type: Spontaneous
  Country: RO (occurrence: RO)
  Receive Date: 20240514
  Receipt Date: 20240514
  Transmission Date: 20240716
  Serious: Yes (Other)
  Sender: FDA-Public Use
  Company Number: RO-SUN PHARMACEUTICAL INDUSTRIES LTD-2024RR-446073

PATIENT
  Age: 48 Year
  Sex: Female

DRUGS (4)
  1. NEBIVOLOL [Suspect]
     Active Substance: NEBIVOLOL
     Indication: Angina pectoris
     Dosage: 5 MILLIGRAM, DAILY
     Route: 065
  2. ASPIRIN [Suspect]
     Active Substance: ASPIRIN
     Indication: Antiplatelet therapy
     Dosage: 100 MILLIGRAM, DAILY
     Route: 065
  3. ATORVASTATIN [Suspect]
     Active Substance: ATORVASTATIN
     Indication: Angina pectoris
     Dosage: 20 MILLIGRAM, DAILY
     Route: 065
  4. PERINDOPRIL [Suspect]
     Active Substance: PERINDOPRIL
     Indication: Pulmonary hypertension
     Dosage: 5 MILLIGRAM, DAILY
     Route: 065

REACTIONS (1)
  - Therapeutic product effect incomplete [Unknown]
